FAERS Safety Report 11403217 (Version 1)
Quarter: 2015Q3

REPORT INFORMATION
  Report Type: Spontaneous
  Country: US (occurrence: None)
  Receive Date: 20150812
  Receipt Date: 20150812
  Transmission Date: 20151125
  Serious: No
  Sender: FDA-Public Use
  Company Number: 1506USA004334

PATIENT
  Age: 40 Year
  Sex: Female

DRUGS (1)
  1. RAGWITEK [Suspect]
     Active Substance: AMBROSIA ARTEMISIIFOLIA POLLEN
     Indication: SEASONAL ALLERGY
     Dosage: 12 AMB A1-U, RECEIVED 4 DOSES
     Route: 060

REACTIONS (5)
  - Pruritus [None]
  - Respiratory disorder [None]
  - Chest discomfort [None]
  - Ear pruritus [None]
  - Flushing [None]
